FAERS Safety Report 5262620-4 (Version None)
Quarter: 2007Q1

REPORT INFORMATION
  Report Type: 
  Country: None (occurrence: None)
  Receive Date: 20070309
  Receipt Date: 20070309
  Transmission Date: 20070707
  Serious: Yes (Other)
  Sender: FDA-Public Use
  Company Number: None

PATIENT
  Sex: Female
  Weight: 95.2554 kg

DRUGS (8)
  1. LAMICTAL [Suspect]
     Indication: MAJOR DEPRESSION
     Dosage: 25 MG TABLETS  25 MG PO DAILY  ORAL
     Route: 048
     Dates: start: 20070222, end: 20070302
  2. AZITHROMYCIN [Suspect]
     Indication: BORDERLINE PERSONALITY DISORDER
     Dosage: ORAL
     Route: 048
  3. REMERON [Concomitant]
  4. EFFEXOR XR [Concomitant]
  5. SEROQUEL [Concomitant]
  6. KLONOPIN [Concomitant]
  7. SEREVENT [Concomitant]
  8. ALBUTEROL [Concomitant]

REACTIONS (4)
  - ABDOMINAL DISCOMFORT [None]
  - PHARYNGOLARYNGEAL PAIN [None]
  - RECTAL HAEMORRHAGE [None]
  - STEVENS-JOHNSON SYNDROME [None]
